FAERS Safety Report 10549539 (Version 2)
Quarter: 2014Q4

REPORT INFORMATION
  Report Type: Spontaneous
  Country: US (occurrence: US)
  Receive Date: 20141028
  Receipt Date: 20141107
  Transmission Date: 20150529
  Serious: Yes (Hospitalization, Other)
  Sender: FDA-Public Use
  Company Number: US-ABBVIE-14P-163-1299150-00

PATIENT
  Sex: Male
  Weight: 52.66 kg

DRUGS (5)
  1. MEGACE [Suspect]
     Active Substance: MEGESTROL ACETATE
     Route: 065
  2. MARINOL [Suspect]
     Active Substance: DRONABINOL
     Indication: DECREASED APPETITE
     Route: 065
     Dates: start: 1997, end: 2002
  3. MEGACE [Suspect]
     Active Substance: MEGESTROL ACETATE
     Indication: DECREASED APPETITE
     Route: 065
     Dates: start: 201409, end: 201410
  4. GEMFIBROZIL. [Suspect]
     Active Substance: GEMFIBROZIL
     Indication: PRODUCT USED FOR UNKNOWN INDICATION
     Route: 065
     Dates: end: 2005
  5. SIMVASTATIN. [Suspect]
     Active Substance: SIMVASTATIN
     Indication: PRODUCT USED FOR UNKNOWN INDICATION
     Route: 065
     Dates: end: 2005

REACTIONS (13)
  - Abdominal pain [Not Recovered/Not Resolved]
  - Gynaecomastia [Recovered/Resolved]
  - Pancreatic carcinoma [Not Recovered/Not Resolved]
  - Monoplegia [Recovered/Resolved]
  - Renal failure [Recovered/Resolved]
  - Abasia [Recovered/Resolved]
  - Gynaecomastia [Not Recovered/Not Resolved]
  - Polyp [Not Recovered/Not Resolved]
  - Apnoea [Recovered/Resolved]
  - Weight decreased [Not Recovered/Not Resolved]
  - Diarrhoea [Not Recovered/Not Resolved]
  - Polyp [Not Recovered/Not Resolved]
  - Fatigue [Not Recovered/Not Resolved]

NARRATIVE: CASE EVENT DATE: 2005
